FAERS Safety Report 13075595 (Version 5)
Quarter: 2019Q2

REPORT INFORMATION
  Report Type: Spontaneous
  Country: US (occurrence: US)
  Receive Date: 20161230
  Receipt Date: 20190408
  Transmission Date: 20190711
  Serious: Yes (Life-Threatening, Other)
  Sender: FDA-Public Use
  Company Number: US-ASTRAZENECA-2016SF36395

PATIENT
  Age: 57 Year
  Sex: Female

DRUGS (106)
  1. NEXIUM [Suspect]
     Active Substance: ESOMEPRAZOLE MAGNESIUM
     Indication: DYSPEPSIA
     Route: 048
  2. NEXIUM [Suspect]
     Active Substance: ESOMEPRAZOLE MAGNESIUM
     Indication: GASTROOESOPHAGEAL REFLUX DISEASE
     Route: 048
     Dates: start: 20141124
  3. PANTOPRAZOLE [Suspect]
     Active Substance: PANTOPRAZOLE
     Indication: GASTROOESOPHAGEAL REFLUX DISEASE
     Route: 065
     Dates: start: 20100713
  4. TRAMADOL. [Concomitant]
     Active Substance: TRAMADOL
     Indication: CARDIOVASCULAR DISORDER
     Route: 065
     Dates: start: 20140912
  5. METFORMIN HYDROCHLORIDE. [Concomitant]
     Active Substance: METFORMIN HYDROCHLORIDE
     Indication: DIABETES MELLITUS
     Route: 065
     Dates: start: 2013, end: 2014
  6. EXFORGE [Concomitant]
     Active Substance: AMLODIPINE BESYLATE\VALSARTAN
  7. XARELTO [Concomitant]
     Active Substance: RIVAROXABAN
     Indication: ANTICOAGULATION DRUG LEVEL THERAPEUTIC
     Route: 065
     Dates: start: 2013, end: 2016
  8. DIOVAN [Concomitant]
     Active Substance: VALSARTAN
     Indication: DIABETES MELLITUS
     Route: 065
     Dates: start: 2015, end: 2016
  9. DIOVAN [Concomitant]
     Active Substance: VALSARTAN
     Indication: DIABETES MELLITUS
     Route: 065
     Dates: start: 2005, end: 2011
  10. DIOVAN [Concomitant]
     Active Substance: VALSARTAN
     Indication: BLOOD PRESSURE MEASUREMENT
     Route: 065
     Dates: start: 2005, end: 2011
  11. DIOVAN [Concomitant]
     Active Substance: VALSARTAN
     Indication: DYSPEPSIA
     Route: 065
     Dates: start: 2005, end: 2011
  12. DIOVAN [Concomitant]
     Active Substance: VALSARTAN
     Indication: BLOOD PRESSURE MEASUREMENT
     Route: 065
     Dates: start: 2008, end: 2011
  13. TIZANIDINE. [Concomitant]
     Active Substance: TIZANIDINE
     Dosage: 4 MG TABLET
  14. ALLOPURINOL. [Concomitant]
     Active Substance: ALLOPURINOL
     Dosage: 100 MG TABLET
  15. COENZYME Q10 [Concomitant]
     Active Substance: UBIDECARENONE
     Indication: CARDIAC DISORDER
  16. SIMVASTATIN. [Concomitant]
     Active Substance: SIMVASTATIN
     Indication: BLOOD CHOLESTEROL
     Dates: start: 2008, end: 2011
  17. NEXIUM [Suspect]
     Active Substance: ESOMEPRAZOLE MAGNESIUM
     Indication: DYSPEPSIA
     Route: 048
     Dates: start: 20100713, end: 20141031
  18. NEXIUM [Suspect]
     Active Substance: ESOMEPRAZOLE MAGNESIUM
     Indication: GASTROOESOPHAGEAL REFLUX DISEASE
     Route: 048
  19. METOPROLOL. [Concomitant]
     Active Substance: METOPROLOL
  20. DIOVAN [Concomitant]
     Active Substance: VALSARTAN
     Indication: BLOOD PRESSURE MEASUREMENT
     Route: 065
     Dates: start: 2015, end: 2016
  21. DIOVAN [Concomitant]
     Active Substance: VALSARTAN
     Indication: ANTACID THERAPY
     Route: 065
     Dates: start: 2015, end: 2016
  22. DIOVAN [Concomitant]
     Active Substance: VALSARTAN
     Indication: GASTROOESOPHAGEAL REFLUX DISEASE
     Route: 065
     Dates: start: 2008, end: 2011
  23. DIOVAN [Concomitant]
     Active Substance: VALSARTAN
     Indication: ANTACID THERAPY
     Route: 065
     Dates: start: 2006, end: 2008
  24. DIOVAN [Concomitant]
     Active Substance: VALSARTAN
     Indication: DIABETES MELLITUS
     Route: 065
     Dates: start: 2008, end: 2011
  25. DIOVAN [Concomitant]
     Active Substance: VALSARTAN
     Indication: BLOOD PRESSURE MEASUREMENT
     Route: 065
     Dates: start: 2011, end: 2011
  26. DIOVAN [Concomitant]
     Active Substance: VALSARTAN
     Indication: BLOOD CHOLESTEROL
     Route: 065
     Dates: start: 2011, end: 2011
  27. AMITRIPTYLINE HYDROCHLORIDE. [Concomitant]
     Active Substance: AMITRIPTYLINE HYDROCHLORIDE
     Dosage: 25 MG TABLET
  28. CETIRIZINE HYDROCHLORIDE. [Concomitant]
     Active Substance: CETIRIZINE HYDROCHLORIDE
     Dosage: 10 MG TABLET
  29. VITAMIN B12 [Concomitant]
     Active Substance: CYANOCOBALAMIN
  30. LIPITOR [Concomitant]
     Active Substance: ATORVASTATIN CALCIUM
     Indication: BLOOD CHOLESTEROL
     Dates: start: 2006, end: 2008
  31. NEXIUM [Suspect]
     Active Substance: ESOMEPRAZOLE MAGNESIUM
     Indication: DYSPEPSIA
     Route: 048
     Dates: start: 20141124
  32. DIOVAN [Concomitant]
     Active Substance: VALSARTAN
     Indication: DIABETES MELLITUS
     Route: 065
     Dates: start: 2015, end: 2016
  33. DIOVAN [Concomitant]
     Active Substance: VALSARTAN
     Indication: DYSPEPSIA
     Route: 065
     Dates: start: 2015, end: 2016
  34. DIOVAN [Concomitant]
     Active Substance: VALSARTAN
     Indication: GASTROOESOPHAGEAL REFLUX DISEASE
     Route: 065
     Dates: start: 2015, end: 2016
  35. DIOVAN [Concomitant]
     Active Substance: VALSARTAN
     Indication: BLOOD PRESSURE MEASUREMENT
     Route: 065
     Dates: start: 2008, end: 2011
  36. DIOVAN [Concomitant]
     Active Substance: VALSARTAN
     Indication: DIABETES MELLITUS
     Route: 065
     Dates: start: 2008, end: 2011
  37. DIOVAN [Concomitant]
     Active Substance: VALSARTAN
     Indication: ANTACID THERAPY
     Route: 065
     Dates: start: 2008, end: 2011
  38. DIOVAN [Concomitant]
     Active Substance: VALSARTAN
     Indication: DYSPEPSIA
     Route: 065
     Dates: start: 2011, end: 2011
  39. HYDROCODONE BITARTRATE AND ACETAMINOPHEN [Concomitant]
     Active Substance: ACETAMINOPHEN\HYDROCODONE BITARTRATE
     Dosage: 7.5MG/750MG TABS
  40. ROSUVASTATIN CALCIUM. [Concomitant]
     Active Substance: ROSUVASTATIN CALCIUM
  41. NEXIUM [Suspect]
     Active Substance: ESOMEPRAZOLE MAGNESIUM
     Indication: DYSPEPSIA
     Dosage: 30 MG GENERIC
     Route: 065
     Dates: start: 20170425
  42. DIOVAN [Concomitant]
     Active Substance: VALSARTAN
     Indication: DYSPEPSIA
     Route: 065
     Dates: start: 2014
  43. DIOVAN [Concomitant]
     Active Substance: VALSARTAN
     Indication: GASTROOESOPHAGEAL REFLUX DISEASE
     Route: 065
     Dates: start: 2014
  44. DIOVAN [Concomitant]
     Active Substance: VALSARTAN
     Indication: BLOOD CHOLESTEROL
     Route: 065
     Dates: start: 2015, end: 2016
  45. DIOVAN [Concomitant]
     Active Substance: VALSARTAN
     Indication: BLOOD CHOLESTEROL
     Route: 065
     Dates: start: 2015, end: 2016
  46. DIOVAN [Concomitant]
     Active Substance: VALSARTAN
     Indication: BLOOD CHOLESTEROL
     Route: 065
     Dates: start: 2006, end: 2008
  47. DIOVAN [Concomitant]
     Active Substance: VALSARTAN
     Indication: DYSPEPSIA
     Route: 065
     Dates: start: 2006, end: 2008
  48. DIOVAN [Concomitant]
     Active Substance: VALSARTAN
     Indication: BLOOD CHOLESTEROL
     Route: 065
     Dates: start: 2008, end: 2011
  49. DIOVAN [Concomitant]
     Active Substance: VALSARTAN
     Indication: GASTROOESOPHAGEAL REFLUX DISEASE
     Route: 065
     Dates: start: 2008, end: 2011
  50. CLONIDINE. [Concomitant]
     Active Substance: CLONIDINE
     Dosage: 0.1 MG TABLET
  51. TUMS [Concomitant]
     Active Substance: CALCIUM CARBONATE
  52. TEKTURNA [Concomitant]
     Active Substance: ALISKIREN HEMIFUMARATE
     Indication: BLOOD PRESSURE MEASUREMENT
     Dates: start: 2011
  53. VALSARTAN. [Concomitant]
     Active Substance: VALSARTAN
  54. NEXIUM [Suspect]
     Active Substance: ESOMEPRAZOLE MAGNESIUM
     Indication: GASTROOESOPHAGEAL REFLUX DISEASE
     Route: 048
     Dates: start: 20100713, end: 20141031
  55. AMLODIPINE BESYLATE. [Concomitant]
     Active Substance: AMLODIPINE BESYLATE
     Dosage: 10 MG TAB
  56. DIOVAN [Concomitant]
     Active Substance: VALSARTAN
     Indication: BLOOD CHOLESTEROL
     Route: 065
     Dates: start: 2014
  57. DIOVAN [Concomitant]
     Active Substance: VALSARTAN
     Indication: GASTROOESOPHAGEAL REFLUX DISEASE
     Route: 065
     Dates: start: 2015, end: 2016
  58. DIOVAN [Concomitant]
     Active Substance: VALSARTAN
     Indication: ANTACID THERAPY
     Route: 065
     Dates: start: 2008, end: 2011
  59. DIOVAN [Concomitant]
     Active Substance: VALSARTAN
     Indication: DIABETES MELLITUS
     Route: 065
     Dates: start: 2006, end: 2008
  60. DIOVAN [Concomitant]
     Active Substance: VALSARTAN
     Indication: ANTACID THERAPY
     Route: 065
     Dates: start: 2005, end: 2011
  61. DIOVAN [Concomitant]
     Active Substance: VALSARTAN
     Indication: BLOOD PRESSURE MEASUREMENT
     Route: 065
     Dates: start: 2008, end: 2011
  62. DILTIAZEM. [Concomitant]
     Active Substance: DILTIAZEM
     Dosage: 30 MG TABLET
  63. PEPCID [Concomitant]
     Active Substance: FAMOTIDINE
  64. JANUVIA [Concomitant]
     Active Substance: SITAGLIPTIN PHOSPHATE
     Indication: DIABETES MELLITUS
     Dates: start: 2008, end: 2011
  65. NEXIUM [Suspect]
     Active Substance: ESOMEPRAZOLE MAGNESIUM
     Indication: DYSPEPSIA
     Route: 048
     Dates: start: 20141031
  66. FUROSEMIDE. [Concomitant]
     Active Substance: FUROSEMIDE
     Indication: DIURETIC THERAPY
     Route: 065
     Dates: start: 2013, end: 2016
  67. CRESTOR [Concomitant]
     Active Substance: ROSUVASTATIN CALCIUM
     Indication: BLOOD CHOLESTEROL
     Route: 065
     Dates: start: 2013, end: 2015
  68. DIOVAN [Concomitant]
     Active Substance: VALSARTAN
     Indication: ANTACID THERAPY
     Route: 065
     Dates: start: 2014
  69. DIOVAN [Concomitant]
     Active Substance: VALSARTAN
     Indication: DYSPEPSIA
     Route: 065
     Dates: start: 2015, end: 2016
  70. DIOVAN [Concomitant]
     Active Substance: VALSARTAN
     Indication: DIABETES MELLITUS
     Route: 065
     Dates: start: 2008, end: 2011
  71. DIOVAN [Concomitant]
     Active Substance: VALSARTAN
     Indication: BLOOD PRESSURE MEASUREMENT
     Route: 065
     Dates: start: 2006, end: 2008
  72. DIOVAN [Concomitant]
     Active Substance: VALSARTAN
     Indication: BLOOD CHOLESTEROL
     Route: 065
     Dates: start: 2005, end: 2011
  73. DIOVAN [Concomitant]
     Active Substance: VALSARTAN
     Indication: GASTROOESOPHAGEAL REFLUX DISEASE
     Route: 065
     Dates: start: 2005, end: 2011
  74. DIOVAN [Concomitant]
     Active Substance: VALSARTAN
     Indication: DYSPEPSIA
     Route: 065
     Dates: start: 2008, end: 2011
  75. DIOVAN [Concomitant]
     Active Substance: VALSARTAN
     Indication: GASTROOESOPHAGEAL REFLUX DISEASE
     Route: 065
     Dates: start: 2011, end: 2011
  76. ETODOLAC. [Concomitant]
     Active Substance: ETODOLAC
     Dosage: 400MG TABLETS
  77. MAGNESIUM [Concomitant]
     Active Substance: MAGNESIUM
  78. IPRATROPIUM [Concomitant]
     Active Substance: IPRATROPIUM
  79. NEXIUM [Suspect]
     Active Substance: ESOMEPRAZOLE MAGNESIUM
     Indication: GASTROOESOPHAGEAL REFLUX DISEASE
     Route: 048
     Dates: start: 20141031
  80. NEXIUM [Suspect]
     Active Substance: ESOMEPRAZOLE MAGNESIUM
     Indication: GASTROOESOPHAGEAL REFLUX DISEASE
     Dosage: 30 MG GENERIC
     Route: 065
     Dates: start: 20170425
  81. PRILOSEC [Suspect]
     Active Substance: OMEPRAZOLE MAGNESIUM
     Route: 048
  82. PANTOPRAZOLE [Suspect]
     Active Substance: PANTOPRAZOLE
     Indication: DYSPEPSIA
     Route: 065
     Dates: start: 20100713
  83. PRAVASTATIN. [Concomitant]
     Active Substance: PRAVASTATIN
     Indication: BLOOD CHOLESTEROL
     Route: 065
     Dates: start: 2013
  84. LANTUS [Concomitant]
     Active Substance: INSULIN GLARGINE
     Indication: DIABETES MELLITUS
     Dosage: 100 UNITS
     Route: 065
     Dates: start: 2013, end: 2015
  85. POTASSIUM CHLORIDE. [Concomitant]
     Active Substance: POTASSIUM CHLORIDE
     Dosage: 10 MEQ CAPSULE
  86. DIOVAN [Concomitant]
     Active Substance: VALSARTAN
     Indication: DIABETES MELLITUS
     Route: 065
     Dates: start: 2014
  87. DIOVAN [Concomitant]
     Active Substance: VALSARTAN
     Indication: BLOOD PRESSURE MEASUREMENT
     Route: 065
     Dates: start: 2014
  88. DIOVAN [Concomitant]
     Active Substance: VALSARTAN
     Indication: BLOOD PRESSURE MEASUREMENT
     Route: 065
     Dates: start: 2015, end: 2016
  89. DIOVAN [Concomitant]
     Active Substance: VALSARTAN
     Indication: DYSPEPSIA
     Route: 065
     Dates: start: 2008, end: 2011
  90. DIOVAN [Concomitant]
     Active Substance: VALSARTAN
     Indication: BLOOD CHOLESTEROL
     Route: 065
     Dates: start: 2008, end: 2011
  91. DIOVAN [Concomitant]
     Active Substance: VALSARTAN
     Indication: ANTACID THERAPY
     Route: 065
     Dates: start: 2011, end: 2011
  92. ROLAIDS [Concomitant]
     Active Substance: CALCIUM CARBONATE\MAGNESIUM HYDROXIDE
  93. NEXIUM [Suspect]
     Active Substance: ESOMEPRAZOLE MAGNESIUM
     Indication: DYSPEPSIA
     Dosage: 30 MG GENERIC
     Route: 065
     Dates: start: 20160425
  94. NEXIUM [Suspect]
     Active Substance: ESOMEPRAZOLE MAGNESIUM
     Indication: GASTROOESOPHAGEAL REFLUX DISEASE
     Dosage: 30 MG GENERIC
     Route: 065
     Dates: start: 20160425
  95. TRAMADOL. [Concomitant]
     Active Substance: TRAMADOL
     Indication: PAIN
     Route: 065
     Dates: start: 20140912
  96. LYRICA [Concomitant]
     Active Substance: PREGABALIN
     Indication: PAIN
     Route: 065
     Dates: start: 2015, end: 2016
  97. NOVOLOG [Concomitant]
     Active Substance: INSULIN ASPART
     Dosage: 100 UNITS
  98. VITAMIN D2 [Concomitant]
     Active Substance: ERGOCALCIFEROL
     Dosage: 1.25 MG
  99. DIOVAN [Concomitant]
     Active Substance: VALSARTAN
     Indication: ANTACID THERAPY
     Route: 065
     Dates: start: 2015, end: 2016
  100. DIOVAN [Concomitant]
     Active Substance: VALSARTAN
     Indication: BLOOD CHOLESTEROL
     Route: 065
     Dates: start: 2008, end: 2011
  101. DIOVAN [Concomitant]
     Active Substance: VALSARTAN
     Indication: GASTROOESOPHAGEAL REFLUX DISEASE
     Route: 065
     Dates: start: 2006, end: 2008
  102. DIOVAN [Concomitant]
     Active Substance: VALSARTAN
     Indication: ANTACID THERAPY
     Route: 065
     Dates: start: 2008, end: 2011
  103. DIOVAN [Concomitant]
     Active Substance: VALSARTAN
     Indication: DYSPEPSIA
     Route: 065
     Dates: start: 2008, end: 2011
  104. DIOVAN [Concomitant]
     Active Substance: VALSARTAN
     Indication: GASTROOESOPHAGEAL REFLUX DISEASE
     Route: 065
     Dates: start: 2008, end: 2011
  105. DIOVAN [Concomitant]
     Active Substance: VALSARTAN
     Indication: DIABETES MELLITUS
     Route: 065
     Dates: start: 2011, end: 2011
  106. CYCLOBENZAPRINE. [Concomitant]
     Active Substance: CYCLOBENZAPRINE
     Dosage: 10MG TABLETS

REACTIONS (5)
  - Diabetic ketoacidosis [Unknown]
  - Renal failure [Not Recovered/Not Resolved]
  - Hyperparathyroidism secondary [Unknown]
  - Chronic kidney disease [Unknown]
  - Tubulointerstitial nephritis [Not Recovered/Not Resolved]

NARRATIVE: CASE EVENT DATE: 2014
